FAERS Safety Report 8314824-1 (Version None)
Quarter: 2012Q2

REPORT INFORMATION
  Report Type: 
  Country: None (occurrence: None)
  Receive Date: 20120426
  Receipt Date: 20120419
  Transmission Date: 20120825
  Serious: Yes (Other)
  Sender: FDA-Public Use
  Company Number: US-BAYER-2012-038659

PATIENT
  Age: 70 Year
  Sex: Male
  Weight: 127 kg

DRUGS (15)
  1. FOLIC ACID [Concomitant]
  2. COLCHICINE [Concomitant]
  3. METHOTREXATE [Concomitant]
  4. COUMADIN [Concomitant]
  5. TOPROL-XL [Concomitant]
  6. PANTOPRAZOLE [Concomitant]
  7. ALEVE (CAPLET) [Suspect]
     Dosage: 1 DF, BID
     Route: 048
     Dates: start: 20120412
  8. SYMBICORT [Concomitant]
  9. ZYRTEC [Concomitant]
  10. AZITHROMYCIN [Concomitant]
  11. MAXZIDE [Concomitant]
  12. MULTI-VITAMINS [Concomitant]
  13. DIPHENHYDRAMINE HCL [Concomitant]
  14. ASPIRIN [Concomitant]
  15. SINGULAIR [Concomitant]

REACTIONS (2)
  - HYPOCOAGULABLE STATE [None]
  - COAGULATION TIME PROLONGED [None]
